FAERS Safety Report 8965017 (Version 1)
Quarter: 2012Q4

REPORT INFORMATION
  Report Type: 
  Country: US (occurrence: US)
  Receive Date: 20121213
  Receipt Date: 20121213
  Transmission Date: 20130627
  Serious: Yes (Hospitalization)
  Sender: FDA-Public Use
  Company Number: US-JNJFOC-20121202054

PATIENT
  Age: 78 Year
  Sex: Female
  Weight: 56.7 kg

DRUGS (2)
  1. XARELTO [Suspect]
     Indication: THROMBOSIS PROPHYLAXIS
     Route: 048
  2. XARELTO [Suspect]
     Indication: HIP SURGERY
     Route: 048

REACTIONS (2)
  - Oedema peripheral [Recovered/Resolved]
  - Blister [Recovered/Resolved]
